FAERS Safety Report 9227216 (Version 1)
Quarter: 2013Q1

REPORT INFORMATION
  Report Type: Spontaneous
  Country: US (occurrence: US)
  Receive Date: 20120914
  Receipt Date: 20120914
  Transmission Date: 20140127
  Serious: Yes (Other)
  Sender: FDA-Public Use
  Company Number: JPI-P-019486

PATIENT
  Age: 26 Year
  Sex: Female

DRUGS (3)
  1. XYREM (500 MG/ML SOLUTION)(SODIUM OXYBATE) [Suspect]
     Indication: CATAPLEXY
     Dosage: 2 DOSES OF 2.25 GM TAKEN NIGHTLY/AT  BEDTIME.
     Route: 048
     Dates: start: 20071026
  2. METHYLPHENIDATE [Concomitant]
  3. BIRTH CONTROL [Concomitant]

REACTIONS (6)
  - Convulsion [None]
  - Loss of consciousness [None]
  - Tonic clonic movements [None]
  - Foaming at mouth [None]
  - Tongue injury [None]
  - Intentional drug misuse [None]
